FAERS Safety Report 7911473-1 (Version None)
Quarter: 2011Q4

REPORT INFORMATION
  Report Type: 
  Country: None (occurrence: None)
  Receive Date: 20111114
  Receipt Date: 20111104
  Transmission Date: 20120403
  Serious: Yes (Hospitalization)
  Sender: FDA-Public Use
  Company Number: FR-BRISTOL-MYERS SQUIBB COMPANY-16219750

PATIENT
  Age: 76 Year
  Sex: Male

DRUGS (6)
  1. POVIDONE IODINE [Concomitant]
     Dosage: EYE DROPS
  2. METFORMIN HCL [Concomitant]
  3. IRBESARTAN AND HYDROCHLOROTHIAZIDE [Suspect]
     Route: 048
     Dates: start: 20110907
  4. TRUSOPT [Concomitant]
     Dosage: EYE DROPS
  5. NOVOLOG MIX 70/30 [Suspect]
     Route: 058
     Dates: start: 20110906
  6. INSULIN HUMAN [Concomitant]

REACTIONS (3)
  - DEHYDRATION [None]
  - HYPONATRAEMIA [None]
  - HYPOTENSION [None]
